FAERS Safety Report 7374648-9 (Version None)
Quarter: 2011Q1

REPORT INFORMATION
  Report Type: 
  Country: None (occurrence: None)
  Receive Date: 20110325
  Receipt Date: 20100610
  Transmission Date: 20110831
  Serious: No
  Sender: FDA-Public Use
  Company Number: US-MYLANLABS-2010S1010553

PATIENT
  Age: 40 Year
  Sex: Male
  Weight: 63.5 kg

DRUGS (1)
  1. FENTANYL-100 [Suspect]
     Indication: BACK PAIN
     Dosage: CHANGED Q72H
     Route: 062

REACTIONS (2)
  - APPLICATION SITE ERYTHEMA [None]
  - DRUG SCREEN NEGATIVE [None]
